FAERS Safety Report 8476000-1 (Version None)
Quarter: 2012Q2

REPORT INFORMATION
  Report Type: 
  Country: None (occurrence: None)
  Receive Date: 20120628
  Receipt Date: 20120619
  Transmission Date: 20120825
  Serious: Yes (Other)
  Sender: FDA-Public Use
  Company Number: US-ASTRAZENECA-2012SE41411

PATIENT
  Age: 48 Year
  Sex: Female

DRUGS (2)
  1. SPIRIVA [Concomitant]
  2. SYMBICORT [Suspect]
     Dosage: FREQUENCY UNKNOWN
     Route: 055

REACTIONS (1)
  - HEART VALVE INCOMPETENCE [None]
